FAERS Safety Report 25092406 (Version 3)
Quarter: 2025Q2

REPORT INFORMATION
  Report Type: Spontaneous
  Country: GB (occurrence: GB)
  Receive Date: 20250319
  Receipt Date: 20250401
  Transmission Date: 20250717
  Serious: Yes (Other)
  Sender: BIOGEN
  Company Number: None

PATIENT
  Age: 22 Year
  Sex: Male
  Weight: 82 kg

DRUGS (2)
  1. SPINRAZA [Suspect]
     Active Substance: NUSINERSEN
     Indication: Spinal muscular atrophy
     Dosage: 12MG EVERY FOUR MONTHS
     Route: 050
     Dates: start: 20210720
  2. VITAMIN D SUBSTANCES [Concomitant]
     Indication: Adverse drug reaction
     Route: 050

REACTIONS (1)
  - Optic disc disorder [Not Recovered/Not Resolved]

NARRATIVE: CASE EVENT DATE: 20250214
